FAERS Safety Report 13403439 (Version 1)
Quarter: 2017Q2

REPORT INFORMATION
  Report Type: Report from Study
  Country: US (occurrence: US)
  Receive Date: 20170405
  Receipt Date: 20170405
  Transmission Date: 20170830
  Serious: Yes (Death)
  Sender: FDA-Public Use
  Company Number: US-ASTRAZENECA-2016SE90592

PATIENT
  Age: 682 Month
  Sex: Male
  Weight: 88 kg

DRUGS (18)
  1. TAGRISSO [Suspect]
     Active Substance: OSIMERTINIB
     Indication: LUNG NEOPLASM MALIGNANT
     Dosage: TAKING TAGRISSO 80MG AND ALTERNATING EVERY OTHER DAY WITH 40MG
     Route: 048
  2. OXYMORPHONE [Concomitant]
     Active Substance: OXYMORPHONE
  3. TAGRISSO [Suspect]
     Active Substance: OSIMERTINIB
     Indication: NON-SMALL CELL LUNG CANCER
     Route: 048
     Dates: start: 20151204
  4. ALPRAZOLAM. [Concomitant]
     Active Substance: ALPRAZOLAM
  5. PATADAY [Concomitant]
     Active Substance: OLOPATADINE HYDROCHLORIDE
  6. OLOPATADINE. [Concomitant]
     Active Substance: OLOPATADINE
  7. OXYCODONE [Concomitant]
     Active Substance: OXYCODONE
  8. SYNTHROID [Concomitant]
     Active Substance: LEVOTHYROXINE SODIUM
  9. TAGRISSO [Suspect]
     Active Substance: OSIMERTINIB
     Indication: NON-SMALL CELL LUNG CANCER
     Route: 048
     Dates: start: 20160818
  10. BETAMETHASONE DIPROPIONATE. [Concomitant]
     Active Substance: BETAMETHASONE DIPROPIONATE
  11. NICOTROL [Concomitant]
     Active Substance: NICOTINE
  12. NEXIUM [Suspect]
     Active Substance: ESOMEPRAZOLE MAGNESIUM
     Route: 048
  13. TAGRISSO [Suspect]
     Active Substance: OSIMERTINIB
     Indication: LUNG NEOPLASM MALIGNANT
     Route: 048
     Dates: start: 20151204
  14. METHADONE [Concomitant]
     Active Substance: METHADONE HYDROCHLORIDE
  15. LATUDA [Concomitant]
     Active Substance: LURASIDONE HYDROCHLORIDE
  16. CHANTIX [Concomitant]
     Active Substance: VARENICLINE TARTRATE
  17. TAGRISSO [Suspect]
     Active Substance: OSIMERTINIB
     Indication: LUNG NEOPLASM MALIGNANT
     Route: 048
     Dates: start: 20160818
  18. TAGRISSO [Suspect]
     Active Substance: OSIMERTINIB
     Indication: NON-SMALL CELL LUNG CANCER
     Dosage: TAKING TAGRISSO 80MG AND ALTERNATING EVERY OTHER DAY WITH 40MG
     Route: 048

REACTIONS (4)
  - Death [Fatal]
  - Intentional product misuse [Unknown]
  - Incorrect dose administered [Unknown]
  - Nail disorder [Unknown]

NARRATIVE: CASE EVENT DATE: 201608
